FAERS Safety Report 4340330-5 (Version None)
Quarter: 2004Q2

REPORT INFORMATION
  Report Type: 
  Country: None (occurrence: None)
  Receive Date: 20040407
  Receipt Date: 20040323
  Transmission Date: 20050107
  Serious: Yes (Other)
  Sender: FDA-Public Use
  Company Number: 200410206BCA

PATIENT
  Age: 56 Year
  Sex: Female

DRUGS (3)
  1. FLEBOGAMMA [Suspect]
     Indication: BONE MARROW TRANSPLANT
     Dosage: 55 G, INTRAVENOUS
     Route: 042
     Dates: start: 20040223
  2. FLEBOGAMMA [Suspect]
     Dosage: 55 G, INTRAVENOUS
     Route: 042
     Dates: start: 20040223
  3. FLEBOGAMMA [Suspect]
     Dosage: 55 G, INTRAVENOUS
     Route: 042
     Dates: start: 20040223

REACTIONS (1)
  - HEPATITIS [None]
